FAERS Safety Report 4818469-7 (Version None)
Quarter: 2005Q4

REPORT INFORMATION
  Report Type: 
  Country: None (occurrence: None)
  Receive Date: 20051031
  Receipt Date: 20051031
  Transmission Date: 20060501
  Serious: Yes (Hospitalization)
  Sender: FDA-Public Use
  Company Number: None

PATIENT
  Age: 58 Year
  Sex: Male
  Weight: 86.1834 kg

DRUGS (1)
  1. SARGRAMOSTIM 500 MCG (VIAL) [Suspect]
     Indication: WHITE BLOOD CELL COUNT INCREASED
     Dosage: 500 MCG (SQ INJ) -DAILY (1ST DOSE)
     Route: 058
     Dates: start: 20050907

REACTIONS (4)
  - ERYTHEMA [None]
  - FLUSHING [None]
  - PYREXIA [None]
  - SWELLING [None]
